FAERS Safety Report 6244695-9 (Version None)
Quarter: 2009Q2

REPORT INFORMATION
  Report Type: 
  Country: None (occurrence: None)
  Receive Date: 20090625
  Receipt Date: 20090612
  Transmission Date: 20091009
  Serious: Yes (Other)
  Sender: FDA-Public Use
  Company Number: GB-PFIZER INC-2009200818

PATIENT
  Age: 74 Year

DRUGS (10)
  1. FESOTERODINE [Suspect]
     Indication: HYPERTONIC BLADDER
     Dosage: 4 MG, UNK
     Route: 048
     Dates: start: 20090306, end: 20090402
  2. FESOTERODINE [Suspect]
     Dosage: 8 MG, UNK
     Dates: start: 20090403, end: 20090420
  3. AMLODIPINE BESILATE [Concomitant]
     Dosage: UNK
     Route: 048
     Dates: start: 20081201
  4. BISOPROLOL [Concomitant]
     Dosage: UNK
     Route: 048
     Dates: start: 20050101
  5. GLICLAZIDE [Concomitant]
     Dosage: UNK
     Route: 048
     Dates: start: 20070101
  6. RANITIDINE [Concomitant]
     Dosage: UNK
     Route: 048
     Dates: start: 20081001
  7. PROCHLORPERAZINE [Concomitant]
     Dosage: UNK
     Route: 048
     Dates: start: 20080901
  8. METFORMIN HYDROCHLORIDE [Concomitant]
     Dosage: UNK
     Route: 048
     Dates: start: 20010101
  9. LOSARTAN [Concomitant]
     Dosage: UNK
     Route: 048
     Dates: start: 20030101
  10. FUROSEMIDE [Concomitant]
     Dosage: UNK
     Route: 048
     Dates: start: 20090420

REACTIONS (2)
  - HYPERTENSION [None]
  - OEDEMA PERIPHERAL [None]
